FAERS Safety Report 20189766 (Version 1)
Quarter: 2021Q4

REPORT INFORMATION
  Report Type: Spontaneous
  Country: CN (occurrence: CN)
  Receive Date: 20211215
  Receipt Date: 20211215
  Transmission Date: 20220303
  Serious: Yes (Death, Other)
  Sender: FDA-Public Use
  Company Number: CN-GILEAD-2021-0560482

PATIENT
  Age: 52 Year
  Sex: Male

DRUGS (1)
  1. AMPHOTERICIN B [Suspect]
     Active Substance: AMPHOTERICIN B
     Indication: Central nervous system fungal infection
     Dosage: UNK UNK, UNKNOWN FREQ.
     Route: 042

REACTIONS (2)
  - Renal impairment [Fatal]
  - Drug ineffective [Fatal]
